FAERS Safety Report 18024496 (Version 1)
Quarter: 2020Q3

REPORT INFORMATION
  Report Type: Spontaneous
  Country: US (occurrence: US)
  Receive Date: 20200714
  Receipt Date: 20200714
  Transmission Date: 20201103
  Serious: No
  Sender: FDA-Public Use
  Company Number: None

PATIENT
  Age: 53 Year
  Sex: Female
  Weight: 73.35 kg

DRUGS (12)
  1. ONDANSETRON ODT 4MG TABLETS [Suspect]
     Active Substance: ONDANSETRON
     Indication: NAUSEA
     Dosage: QUANTITY:2 TABLET(S);?
     Route: 048
  2. COLACE [Concomitant]
     Active Substance: DOCUSATE SODIUM
  3. LISINOPRIL. [Concomitant]
     Active Substance: LISINOPRIL
  4. FLORASTOR PROBIOTIC [Concomitant]
  5. SYNTHROID [Concomitant]
     Active Substance: LEVOTHYROXINE SODIUM
  6. CELECOXIB. [Concomitant]
     Active Substance: CELECOXIB
  7. ASPIRIN. [Concomitant]
     Active Substance: ASPIRIN
  8. AUTO CPAP [Concomitant]
  9. TYLENOL [Concomitant]
     Active Substance: ACETAMINOPHEN
  10. VITAMIN C [Concomitant]
     Active Substance: ASCORBIC ACID
  11. VITAMIN D [Concomitant]
     Active Substance: VITAMIN D NOS
  12. TRAMADOL. [Concomitant]
     Active Substance: TRAMADOL

REACTIONS (2)
  - Knee arthroplasty [None]
  - Rash [None]

NARRATIVE: CASE EVENT DATE: 20200618
